FAERS Safety Report 21442725 (Version 1)
Quarter: 2022Q4

REPORT INFORMATION
  Report Type: Spontaneous
  Country: FR (occurrence: None)
  Receive Date: 20221012
  Receipt Date: 20221012
  Transmission Date: 20230113
  Serious: Yes (Other)
  Sender: FDA-Public Use
  Company Number: 2022A336606

PATIENT
  Age: 16 Year
  Sex: Female
  Weight: 65 kg

DRUGS (9)
  1. QUETIAPINE [Suspect]
     Active Substance: QUETIAPINE
     Indication: Depression
     Route: 048
     Dates: start: 20220915, end: 20220919
  2. QUETIAPINE [Suspect]
     Active Substance: QUETIAPINE
     Indication: Depression
     Route: 048
     Dates: start: 20220819, end: 20220908
  3. QUETIAPINE [Suspect]
     Active Substance: QUETIAPINE
     Indication: Depression
     Route: 048
     Dates: start: 20220727, end: 20220819
  4. QUETIAPINE [Suspect]
     Active Substance: QUETIAPINE
     Indication: Depression
     Route: 048
     Dates: start: 20220919, end: 20220926
  5. QUETIAPINE [Suspect]
     Active Substance: QUETIAPINE
     Indication: Depression
     Route: 048
     Dates: start: 20220908, end: 20220915
  6. QUETIAPINE [Suspect]
     Active Substance: QUETIAPINE
     Indication: Depression
     Route: 048
     Dates: start: 20220926
  7. MIRENA [Concomitant]
     Active Substance: LEVONORGESTREL
     Dosage: UNKNOWN
     Route: 065
  8. LOXAPINE [Concomitant]
     Active Substance: LOXAPINE
     Dosage: UNKNOWN
     Route: 065
  9. PRAZEPAM [Concomitant]
     Active Substance: PRAZEPAM
     Dosage: UNKNOWN
     Route: 065

REACTIONS (4)
  - Acute psychosis [Recovering/Resolving]
  - Enuresis [Not Recovered/Not Resolved]
  - Intermenstrual bleeding [Not Recovered/Not Resolved]
  - Abnormal weight gain [Not Recovered/Not Resolved]

NARRATIVE: CASE EVENT DATE: 20220727
